FAERS Safety Report 19170616 (Version 1)
Quarter: 2021Q2

REPORT INFORMATION
  Report Type: Spontaneous
  Country: US (occurrence: US)
  Receive Date: 20210422
  Receipt Date: 20210422
  Transmission Date: 20210717
  Serious: Yes (Other)
  Sender: FDA-Public Use
  Company Number: US-TEVA-2021-US-1903040

PATIENT
  Sex: Male

DRUGS (1)
  1. TEVA TREPROSTINIL [Suspect]
     Active Substance: TREPROSTINIL
     Indication: PULMONARY ARTERIAL HYPERTENSION
     Dosage: 75NG/KG/MIN, CONTINUOUS
     Route: 042
     Dates: start: 20200515

REACTIONS (1)
  - Vascular device infection [Unknown]
